FAERS Safety Report 5925352-2 (Version None)
Quarter: 2008Q4

REPORT INFORMATION
  Report Type: 
  Country: None (occurrence: None)
  Receive Date: 20081021
  Receipt Date: 20081017
  Transmission Date: 20090506
  Serious: Yes (Hospitalization)
  Sender: FDA-Public Use
  Company Number: JP-BRISTOL-MYERS SQUIBB COMPANY-14374995

PATIENT
  Age: 77 Year
  Sex: Male

DRUGS (3)
  1. PARAPLATIN [Suspect]
     Indication: THYMOMA MALIGNANT
     Dosage: GIVEN FOR TOTALLY 4 CYCLES
     Route: 041
     Dates: start: 20071201
  2. ETOPOSIDE [Suspect]
     Indication: THYMOMA MALIGNANT
     Dosage: GIVEN FOR TOTALLY 4 CYCLES
     Route: 041
     Dates: start: 20071201
  3. MESTINON [Concomitant]
     Route: 048

REACTIONS (1)
  - APLASIA PURE RED CELL [None]
